FAERS Safety Report 7376984-9 (Version None)
Quarter: 2011Q1

REPORT INFORMATION
  Report Type: 
  Country: None (occurrence: None)
  Receive Date: 20110328
  Receipt Date: 20110316
  Transmission Date: 20110831
  Serious: Yes (Hospitalization)
  Sender: FDA-Public Use
  Company Number: US-BIOGENIDEC-2011BI003136

PATIENT
  Sex: Female

DRUGS (2)
  1. AVONEX [Suspect]
     Indication: MULTIPLE SCLEROSIS
     Route: 030
     Dates: start: 19990421
  2. AVONEX [Suspect]
     Route: 030

REACTIONS (3)
  - UTERINE LEIOMYOMA [None]
  - UTERINE CANCER [None]
  - ENDOMETRIOSIS [None]
